FAERS Safety Report 15121991 (Version 1)
Quarter: 2018Q3

REPORT INFORMATION
  Report Type: Spontaneous
  Country: GR (occurrence: GR)
  Receive Date: 20180709
  Receipt Date: 20180709
  Transmission Date: 20181010
  Serious: Yes (Other)
  Sender: FDA-Public Use
  Company Number: GR-OTSUKA-2018_017850

PATIENT
  Age: 35 Year
  Sex: Female
  Weight: 52 kg

DRUGS (6)
  1. ABILIFY [Suspect]
     Active Substance: ARIPIPRAZOLE
     Indication: DEPRESSION
     Dosage: 1 DF, QD
     Route: 048
     Dates: start: 20140211
  2. ANAFRANIL [Suspect]
     Active Substance: CLOMIPRAMINE HYDROCHLORIDE
     Dosage: 4 DF, QD
     Route: 048
  3. STEDON [Suspect]
     Active Substance: DIAZEPAM
     Indication: DEPRESSION
     Dosage: 10 MG, AS NEEDED
     Route: 048
     Dates: start: 20140211
  4. AKINETON [Suspect]
     Active Substance: BIPERIDEN HYDROCHLORIDE
     Indication: DEPRESSION
     Dosage: 1 DF, QD
     Route: 048
     Dates: start: 20140326
  5. QUEPIN [Suspect]
     Active Substance: QUETIAPINE
     Indication: DEPRESSION
     Dosage: 1.5 DF, QD
     Route: 048
     Dates: start: 20140211
  6. ANAFRANIL [Suspect]
     Active Substance: CLOMIPRAMINE HYDROCHLORIDE
     Indication: DEPRESSION
     Dosage: 6 DF, QD
     Route: 048
     Dates: start: 20140211

REACTIONS (4)
  - Micturition disorder [Recovering/Resolving]
  - Pruritus [Not Recovered/Not Resolved]
  - Swelling face [Not Recovered/Not Resolved]
  - Tremor [Unknown]

NARRATIVE: CASE EVENT DATE: 20140217
